FAERS Safety Report 19540441 (Version 2)
Quarter: 2021Q3

REPORT INFORMATION
  Report Type: Spontaneous
  Country: US (occurrence: US)
  Receive Date: 20210713
  Receipt Date: 20210729
  Transmission Date: 20211014
  Serious: No
  Sender: FDA-Public Use
  Company Number: US-KYOWAKIRIN-2021BKK012007

PATIENT

DRUGS (3)
  1. POTELIGEO [Suspect]
     Active Substance: MOGAMULIZUMAB-KPKC
     Indication: CUTANEOUS T-CELL LYMPHOMA STAGE II
     Dosage: CYCLE 1, D8
     Route: 042
     Dates: start: 20210602, end: 202106
  2. POTELIGEO [Suspect]
     Active Substance: MOGAMULIZUMAB-KPKC
     Dosage: CYCLE 1, D15 (STARTED SPLIT DOSING)
     Route: 042
     Dates: start: 20210609
  3. POTELIGEO [Suspect]
     Active Substance: MOGAMULIZUMAB-KPKC
     Dosage: CYCLE 1, D1
     Route: 042
     Dates: start: 202105, end: 202105

REACTIONS (2)
  - Off label use [Not Recovered/Not Resolved]
  - Infusion related reaction [Recovered/Resolved]

NARRATIVE: CASE EVENT DATE: 20210602
